FAERS Safety Report 24878182 (Version 3)
Quarter: 2025Q3

REPORT INFORMATION
  Report Type: Spontaneous
  Country: JP (occurrence: JP)
  Receive Date: 20250123
  Receipt Date: 20250810
  Transmission Date: 20251021
  Serious: Yes (Hospitalization, Other)
  Sender: ALEXION PHARMACEUTICALS
  Company Number: JP-ASTRAZENECA-240108823_032420_P_1

PATIENT
  Sex: Female
  Weight: 68 kg

DRUGS (13)
  1. TEZSPIRE [Suspect]
     Active Substance: TEZEPELUMAB-EKKO
     Indication: Asthma
     Dosage: 210 MILLIGRAM, Q4W
     Dates: start: 20230222, end: 20240930
  2. TEZSPIRE [Suspect]
     Active Substance: TEZEPELUMAB-EKKO
  3. SYMBICORT [Suspect]
     Active Substance: BUDESONIDE\FORMOTEROL FUMARATE DIHYDRATE
     Indication: Asthma
     Dosage: 2 DOSAGE FORM, BID
  4. MONTELUKAST [Concomitant]
     Active Substance: MONTELUKAST
     Indication: Asthma
     Dosage: BEFORE BEDTIME
  5. Heparinoid [Concomitant]
     Indication: Dermatitis atopic
     Dosage: UNK, BID
  6. Myser [Concomitant]
     Indication: Dermatitis atopic
     Dosage: UNK, BID
  7. WHITE PETROLATUM [Concomitant]
     Active Substance: PETROLATUM
     Dosage: UNK, BID
  8. LOCOID [Concomitant]
     Active Substance: HYDROCORTISONE BUTYRATE
  9. XYZAL [Concomitant]
     Active Substance: LEVOCETIRIZINE DIHYDROCHLORIDE
     Indication: Asthma
     Dosage: BEFORE BEDTIME
  10. CALONAL [Concomitant]
     Active Substance: ACETAMINOPHEN
     Indication: Headache
  11. KETOPROFEN [Concomitant]
     Active Substance: KETOPROFEN
  12. CLOBETASOL PROPIONATE [Concomitant]
     Active Substance: CLOBETASOL PROPIONATE
     Indication: Dermatitis atopic
     Dosage: UNK, BID
  13. PROTOPIC [Concomitant]
     Active Substance: TACROLIMUS
     Indication: Dermatitis atopic
     Dosage: UNK UNK, BID

REACTIONS (2)
  - Dermatitis atopic [Recovered/Resolved]
  - Asthma [Recovering/Resolving]
